FAERS Safety Report 6427957-1 (Version None)
Quarter: 2009Q4

REPORT INFORMATION
  Report Type: 
  Country: None (occurrence: None)
  Receive Date: 20091105
  Receipt Date: 20091029
  Transmission Date: 20100525
  Serious: Yes (Other)
  Sender: FDA-Public Use
  Company Number: PHHY2009BR26855

PATIENT
  Age: 51 Year
  Sex: Female

DRUGS (2)
  1. TRILEPTAL [Suspect]
     Dosage: 1 DF, QHS
     Dates: start: 20060701, end: 20081201
  2. LEXAPRO [Concomitant]
     Dosage: HALF TABLET DAILY

REACTIONS (1)
  - INNER EAR DISORDER [None]
